FAERS Safety Report 21173234 (Version 2)
Quarter: 2022Q3

REPORT INFORMATION
  Report Type: Spontaneous
  Country: US (occurrence: US)
  Receive Date: 20220804
  Receipt Date: 20220908
  Transmission Date: 20221026
  Serious: No
  Sender: FDA-Public Use
  Company Number: US-PFIZER INC-PV202200034553

PATIENT
  Age: 82 Year
  Sex: Male
  Weight: 72.562 kg

DRUGS (1)
  1. PAXLOVID [Suspect]
     Active Substance: NIRMATRELVIR\RITONAVIR
     Indication: COVID-19 treatment
     Dosage: UNK (150 (X1)- 100MG PK (EUA) TABS - DOSE PACK)
     Dates: start: 20220728, end: 20220801

REACTIONS (4)
  - Parosmia [Unknown]
  - Dysgeusia [Unknown]
  - Panic disorder [Unknown]
  - Nausea [Unknown]

NARRATIVE: CASE EVENT DATE: 20220101
